FAERS Safety Report 18559608 (Version 1)
Quarter: 2020Q4

REPORT INFORMATION
  Report Type: Spontaneous
  Country: US (occurrence: US)
  Receive Date: 20201130
  Receipt Date: 20201130
  Transmission Date: 20210114
  Serious: Yes (Other)
  Sender: FDA-Public Use
  Company Number: US-MYLANLABS-2020M1097235

PATIENT
  Age: 17 Year
  Sex: Male

DRUGS (14)
  1. METHADONE [Suspect]
     Active Substance: METHADONE HYDROCHLORIDE
     Indication: PAIN
     Dosage: 12.5 MILLIGRAM, QD TILL DAY 7 OF MICRODOSE INDUCTION
     Route: 065
     Dates: start: 2019, end: 201912
  2. BUPRENORPHINE HYDROCHLORIDE/NALOXONE HYDROCHLORIDE [Suspect]
     Active Substance: BUPRENORPHINE HYDROCHLORIDE\NALOXONE HYDROCHLORIDE
     Indication: PAIN
     Dosage: QD, DAY 1- 3; MICRODOSE INDUCTION
     Route: 060
  3. OXYCODONE [Suspect]
     Active Substance: OXYCODONE
     Dosage: APPROXIMATELY 106 MORPHINE MILLIGRAM EQUIVALENTS [MME]; TILL DAY 7 OF MICRODOSE INDUCTION
     Route: 065
     Dates: start: 2019, end: 201912
  4. OXYCODONE [Suspect]
     Active Substance: OXYCODONE
     Dosage: EXTENDED RELEASE; TAPERED DOSEUNK
     Route: 065
     Dates: start: 2019
  5. BUPRENORPHINE HYDROCHLORIDE/NALOXONE HYDROCHLORIDE [Suspect]
     Active Substance: BUPRENORPHINE HYDROCHLORIDE\NALOXONE HYDROCHLORIDE
     Dosage: DAY 8; MICRODOSE INDUCTION; THREE TIMES DAILY
     Route: 060
  6. OXYCODONE [Suspect]
     Active Substance: OXYCODONE
     Indication: PAIN
     Dosage: INITIAL DOSE; IMMEDIATE RELEASE
     Route: 065
     Dates: start: 2016
  7. BUPRENORPHINE HYDROCHLORIDE/NALOXONE HYDROCHLORIDE [Suspect]
     Active Substance: BUPRENORPHINE HYDROCHLORIDE\NALOXONE HYDROCHLORIDE
     Dosage: DAY 6; MICRODOSE INDUCTION; THREE TIMES DAILY
     Route: 060
  8. BUPRENORPHINE HYDROCHLORIDE/NALOXONE HYDROCHLORIDE [Suspect]
     Active Substance: BUPRENORPHINE HYDROCHLORIDE\NALOXONE HYDROCHLORIDE
     Indication: PAIN
     Dosage: BID, DAY 5; MICRODOSE INDUCTION
     Route: 060
  9. BUPRENORPHINE HYDROCHLORIDE/NALOXONE HYDROCHLORIDE [Suspect]
     Active Substance: BUPRENORPHINE HYDROCHLORIDE\NALOXONE HYDROCHLORIDE
     Dosage: QD,MAINTENANCE THERAPY
     Route: 060
  10. BUPRENORPHINE HYDROCHLORIDE/NALOXONE HYDROCHLORIDE [Suspect]
     Active Substance: BUPRENORPHINE HYDROCHLORIDE\NALOXONE HYDROCHLORIDE
     Indication: PAIN
     Dosage: BID, DAY 7; MICRODOSE INDUCTION
     Route: 060
  11. OXYCODONE [Suspect]
     Active Substance: OXYCODONE
     Dosage: INITIAL DOSE; EXTENDED RELEASE
     Route: 065
     Dates: start: 2017
  12. BUPRENORPHINE HYDROCHLORIDE/NALOXONE HYDROCHLORIDE [Suspect]
     Active Substance: BUPRENORPHINE HYDROCHLORIDE\NALOXONE HYDROCHLORIDE
     Dosage: BID, DAY 4 ; MICRODOSE INDUCTION
     Route: 060
  13. OXYCODONE [Suspect]
     Active Substance: OXYCODONE
     Dosage: TAPERED; IMMEDIATE RELEASE
     Route: 065
     Dates: start: 2019
  14. HYDROXYUREA. [Concomitant]
     Active Substance: HYDROXYUREA
     Indication: PAIN
     Dosage: UNK
     Route: 065

REACTIONS (2)
  - Migraine [Unknown]
  - Drug dependence [Unknown]
